FAERS Safety Report 16838878 (Version 1)
Quarter: 2019Q4

REPORT INFORMATION
  Report Type: Spontaneous
  Country: US (occurrence: US)
  Receive Date: 20190920
  Receipt Date: 20190920
  Transmission Date: 20200122
  Serious: Yes (Other)
  Sender: FDA-Public Use
  Company Number: None

PATIENT
  Age: 74 Year
  Sex: Female

DRUGS (10)
  1. METOPROLOL 100 MG [Concomitant]
     Active Substance: METOPROLOL
  2. GLIMEPIRIDE. [Concomitant]
     Active Substance: GLIMEPIRIDE
  3. ROSUVASTATIN 40 MG [Concomitant]
     Active Substance: ROSUVASTATIN
  4. LEVEMIR [Concomitant]
     Active Substance: INSULIN DETEMIR
  5. METFORMIN [Concomitant]
     Active Substance: METFORMIN HYDROCHLORIDE
  6. ALOGLIPTIN. [Suspect]
     Active Substance: ALOGLIPTIN
     Indication: TYPE 2 DIABETES MELLITUS
     Route: 048
     Dates: start: 20190725
  7. APIXABAN 2.5 MG [Concomitant]
     Active Substance: APIXABAN
  8. MECLIZINE [Concomitant]
     Active Substance: MECLIZINE HYDROCHLORIDE
  9. DILTIAZEM ER 180 MG [Concomitant]
  10. OMEPRAZOLE 20 MG [Concomitant]
     Active Substance: OMEPRAZOLE

REACTIONS (2)
  - Vasodilatation [None]
  - Cyst [None]

NARRATIVE: CASE EVENT DATE: 20190920
